FAERS Safety Report 8338735-0 (Version None)
Quarter: 2012Q2

REPORT INFORMATION
  Report Type: 
  Country: None (occurrence: None)
  Receive Date: 20120504
  Receipt Date: 20120420
  Transmission Date: 20120825
  Serious: Yes (Other)
  Sender: FDA-Public Use
  Company Number: CHPA2012US009780

PATIENT
  Sex: Male

DRUGS (2)
  1. EXCEDRIN EXTRA STRENGTH TABLETS [Suspect]
     Dosage: UNK, QD
     Route: 048
  2. EXCEDRIN EXTRA STRENGTH TABLETS [Suspect]
     Indication: HEADACHE
     Dosage: 1 DF, PRN
     Route: 048
     Dates: start: 19650101

REACTIONS (4)
  - INCORRECT DRUG ADMINISTRATION DURATION [None]
  - UNDERDOSE [None]
  - DRUG DEPENDENCE [None]
  - GASTRIC PH DECREASED [None]
